FAERS Safety Report 5193798-9 (Version None)
Quarter: 2006Q4

REPORT INFORMATION
  Report Type: 
  Country: None (occurrence: None)
  Receive Date: 20061228
  Receipt Date: 20061218
  Transmission Date: 20070319
  Serious: Yes (Hospitalization, Other)
  Sender: FDA-Public Use
  Company Number: GB-ELI_LILLY_AND_COMPANY-GB200612003071

PATIENT
  Age: 50 Year
  Sex: Male
  Weight: 78 kg

DRUGS (10)
  1. CYMBALTA [Suspect]
     Indication: DEPRESSION
     Dosage: 120 MG, UNK
     Route: 048
     Dates: start: 20061108, end: 20061112
  2. CYMBALTA [Suspect]
     Dosage: 90 MG, DAILY (1/D)
     Route: 048
  3. AMLODIPINE [Concomitant]
     Dosage: 5 MG, UNK
     Route: 048
  4. DOXAZOSIN MESYLATE [Concomitant]
     Dosage: 8 MG, UNK
     Route: 048
  5. LANSOPRAZOLE [Concomitant]
     Dosage: 300 MG, UNK
     Route: 048
  6. PABRINEX [Concomitant]
     Route: 030
  7. PRIADEL [Concomitant]
     Indication: DEPRESSION
     Dosage: 600 MG, UNK
     Route: 048
  8. PROPRANOLOL [Concomitant]
     Dosage: 20 MG, UNK
     Route: 048
  9. SIMVASTATIN [Concomitant]
     Dosage: 10 MG, UNK
     Route: 048
  10. THIAMINE [Concomitant]
     Dosage: 100 MG, UNK
     Route: 048

REACTIONS (5)
  - DIZZINESS [None]
  - DRY MOUTH [None]
  - DYSPNOEA [None]
  - HYPERHIDROSIS [None]
  - TREMOR [None]
